FAERS Safety Report 13652393 (Version 1)
Quarter: 2017Q2

REPORT INFORMATION
  Report Type: Spontaneous
  Country: AU (occurrence: AU)
  Receive Date: 20170614
  Receipt Date: 20170614
  Transmission Date: 20170830
  Serious: Yes (Hospitalization, Other)
  Sender: FDA-Public Use
  Company Number: PHHY2017AU082472

PATIENT
  Age: 43 Year
  Sex: Female

DRUGS (8)
  1. PERINDOPRIL INDAPAMID [Concomitant]
     Active Substance: INDAPAMIDE\PERINDOPRIL
     Indication: PRODUCT USED FOR UNKNOWN INDICATION
     Route: 065
  2. NILOTINIB [Suspect]
     Active Substance: NILOTINIB
     Dosage: 300 MG, BID
     Route: 065
  3. METOPROLOL. [Concomitant]
     Active Substance: METOPROLOL
     Indication: PRODUCT USED FOR UNKNOWN INDICATION
     Dosage: 50 OT, BID
     Route: 065
  4. COPLAVIX [Concomitant]
     Active Substance: ASPIRIN\CLOPIDOGREL BISULFATE
     Indication: PRODUCT USED FOR UNKNOWN INDICATION
     Dosage: 100/75
     Route: 065
  5. DASATINIB [Suspect]
     Active Substance: DASATINIB
     Indication: CHRONIC MYELOID LEUKAEMIA
     Dosage: 100 MG, QD
     Route: 065
  6. NILOTINIB [Suspect]
     Active Substance: NILOTINIB
     Indication: CHRONIC MYELOID LEUKAEMIA
     Dosage: 400 MG, UNK
     Route: 065
  7. DASATINIB [Suspect]
     Active Substance: DASATINIB
     Dosage: 70 MG, QD
     Route: 065
  8. LASIX [Concomitant]
     Active Substance: FUROSEMIDE
     Indication: PRODUCT USED FOR UNKNOWN INDICATION
     Dosage: 40 OT, BID
     Route: 065

REACTIONS (28)
  - Body temperature increased [Unknown]
  - Lipase increased [Unknown]
  - Arterial stenosis [Unknown]
  - Intermittent claudication [Recovered/Resolved]
  - Stress cardiomyopathy [Unknown]
  - Blood pressure decreased [Unknown]
  - Thrombosis in device [Unknown]
  - Stenosis [Unknown]
  - Pleural effusion [Recovered/Resolved]
  - Peripheral arterial occlusive disease [Unknown]
  - Cough [Unknown]
  - Type 2 diabetes mellitus [Unknown]
  - Hypokinesia [Unknown]
  - Pneumonia [Recovered/Resolved]
  - Myalgia [Unknown]
  - Blood cholesterol increased [Unknown]
  - Xanthelasma [Unknown]
  - Arteriosclerosis [Unknown]
  - Chest pain [Unknown]
  - Diarrhoea [Unknown]
  - Acute myocardial infarction [Unknown]
  - Glucose tolerance impaired [Unknown]
  - Pruritus [Unknown]
  - Dyspnoea [Unknown]
  - Pulse absent [Unknown]
  - Vascular calcification [Unknown]
  - Chest discomfort [Unknown]
  - Abdominal pain [Unknown]
